FAERS Safety Report 9070076 (Version 1)
Quarter: 2013Q1

REPORT INFORMATION
  Report Type: Report from Study
  Country: US (occurrence: US)
  Receive Date: 20130129
  Receipt Date: 20130129
  Transmission Date: 20140127
  Serious: No
  Sender: FDA-Public Use
  Company Number: US-ABBOTT-12P-163-0936538-00

PATIENT
  Age: 42 Year
  Sex: Female

DRUGS (3)
  1. HUMIRA 40 MG/0.8 ML PEN [Suspect]
     Indication: CROHN^S DISEASE
     Dates: start: 201108, end: 20120429
  2. LISINOPRIL [Concomitant]
     Indication: HYPERTENSION
  3. CLONAZEPAM [Concomitant]
     Indication: ANXIETY

REACTIONS (3)
  - Lymphadenopathy [Unknown]
  - Ear pain [Recovering/Resolving]
  - Staphylococcal infection [Recovering/Resolving]
